FAERS Safety Report 4540951-0 (Version None)
Quarter: 2004Q4

REPORT INFORMATION
  Report Type: 
  Country: None (occurrence: None)
  Receive Date: 20041229
  Receipt Date: 20041221
  Transmission Date: 20050328
  Serious: Yes (Hospitalization)
  Sender: FDA-Public Use
  Company Number: PT-GLAXOSMITHKLINE-B0363007A

PATIENT
  Age: 63 Year
  Sex: Male

DRUGS (2)
  1. AVANDIA [Suspect]
     Dosage: 1MG FOUR TIMES PER DAY
     Route: 048
     Dates: start: 20040701, end: 20041107
  2. GLYBURIDE [Concomitant]
     Route: 048
     Dates: start: 20000101

REACTIONS (3)
  - CUTANEOUS VASCULITIS [None]
  - LEUKOCYTOCLASTIC VASCULITIS [None]
  - VASCULITIS NECROTISING [None]
